FAERS Safety Report 11834209 (Version 1)
Quarter: 2015Q4

REPORT INFORMATION
  Report Type: Report from Study
  Country: DE (occurrence: DE)
  Receive Date: 20151214
  Receipt Date: 20151214
  Transmission Date: 20160305
  Serious: Yes (Other)
  Sender: FDA-Public Use
  Company Number: DE-ABBVIE-15K-062-1515383-00

PATIENT
  Age: 58 Year
  Sex: Female

DRUGS (3)
  1. BERODUAL METERED-DOSE INHALER [Concomitant]
     Indication: PRODUCT USED FOR UNKNOWN INDICATION
  2. SYMBICORT [Concomitant]
     Active Substance: BUDESONIDE\FORMOTEROL FUMARATE DIHYDRATE
     Indication: PRODUCT USED FOR UNKNOWN INDICATION
     Dosage: 320/9
  3. HUMIRA [Suspect]
     Active Substance: ADALIMUMAB
     Indication: CROHN^S DISEASE
     Route: 058
     Dates: start: 20081002

REACTIONS (4)
  - Tinnitus [Recovered/Resolved]
  - Conductive deafness [Recovered/Resolved]
  - Poor peripheral circulation [Recovered/Resolved]
  - Ear discomfort [Recovered/Resolved]

NARRATIVE: CASE EVENT DATE: 20151104
